FAERS Safety Report 7751767-6 (Version None)
Quarter: 2011Q3

REPORT INFORMATION
  Report Type: 
  Country: None (occurrence: None)
  Receive Date: 20110915
  Receipt Date: 20110905
  Transmission Date: 20111222
  Serious: Yes (Hospitalization)
  Sender: FDA-Public Use
  Company Number: FI-RANBAXY-2009RR-26078

PATIENT
  Age: 75 Year
  Sex: Female

DRUGS (6)
  1. AURANOFIN [Concomitant]
     Indication: RHEUMATOID ARTHRITIS
     Dosage: 6 MG/DAY
     Route: 065
  2. REUMACON [Suspect]
     Indication: RHEUMATOID ARTHRITIS
     Dosage: 100 MG, BID
     Route: 065
  3. METHOTREXATE [Concomitant]
     Indication: RHEUMATOID ARTHRITIS
     Dosage: 25 MG/WEEK
     Route: 065
  4. SIMVASTATIN [Suspect]
     Dosage: 40 MG/ DAY
     Route: 065
  5. PREDNISOLONE [Concomitant]
     Indication: RHEUMATOID ARTHRITIS
     Dosage: 5 MG/DAY
     Route: 065
  6. SIMVASTATIN [Suspect]
     Indication: HYPERCHOLESTEROLAEMIA
     Dosage: 10 MG/DAY
     Route: 065

REACTIONS (2)
  - RHABDOMYOLYSIS [None]
  - DRUG INTERACTION [None]
